FAERS Safety Report 18943565 (Version 1)
Quarter: 2021Q1

REPORT INFORMATION
  Report Type: Spontaneous
  Country: US (occurrence: US)
  Receive Date: 20210226
  Receipt Date: 20210226
  Transmission Date: 20210420
  Serious: No
  Sender: FDA-Public Use
  Company Number: US-CELGENEUS-USA-20210205013

PATIENT
  Age: 75 Year
  Sex: Male
  Weight: 160 kg

DRUGS (3)
  1. REVLIMID [Suspect]
     Active Substance: LENALIDOMIDE
     Indication: B-CELL LYMPHOMA
     Dosage: 10 MILLIGRAM
     Route: 048
     Dates: start: 20201229
  2. REVLIMID [Suspect]
     Active Substance: LENALIDOMIDE
     Indication: NON-HODGKIN^S LYMPHOMA
  3. REVLIMID [Suspect]
     Active Substance: LENALIDOMIDE
     Indication: OFF LABEL USE
     Dosage: 18.75 MILLIGRAM
     Route: 048
     Dates: start: 202101

REACTIONS (2)
  - Abdominal discomfort [Recovered/Resolved]
  - Lactose intolerance [Unknown]

NARRATIVE: CASE EVENT DATE: 202102
